FAERS Safety Report 10873441 (Version 1)
Quarter: 2015Q1

REPORT INFORMATION
  Report Type: Spontaneous
  Country: ZA (occurrence: ZA)
  Receive Date: 20150227
  Receipt Date: 20150227
  Transmission Date: 20150721
  Serious: Yes (Hospitalization, Other)
  Sender: FDA-Public Use
  Company Number: ZA-AMGEN-ZAFSP2015017727

PATIENT
  Age: 46 Year
  Sex: Female

DRUGS (5)
  1. CISPLATIN. [Concomitant]
     Active Substance: CISPLATIN
     Indication: ENDOMETRIAL CANCER METASTATIC
     Dosage: UNK
  2. DOXORUBICIN [Concomitant]
     Active Substance: DOXORUBICIN
     Indication: ENDOMETRIAL CANCER METASTATIC
     Dosage: UNK
  3. BETANOID                           /00008501/ [Concomitant]
     Active Substance: BETAMETHASONE
     Dosage: UNK
  4. NEUPOGEN [Suspect]
     Active Substance: FILGRASTIM
     Indication: PRODUCT USED FOR UNKNOWN INDICATION
     Dosage: UNK
     Route: 065
  5. EMEND [Concomitant]
     Active Substance: APREPITANT
     Dosage: UNK

REACTIONS (2)
  - Neutrophil count decreased [Unknown]
  - Drug ineffective [Unknown]
